FAERS Safety Report 14349698 (Version 1)
Quarter: 2018Q1

REPORT INFORMATION
  Report Type: Report from Study
  Country: DE (occurrence: DE)
  Receive Date: 20180104
  Receipt Date: 20180104
  Transmission Date: 20180509
  Serious: Yes (Hospitalization)
  Sender: FDA-Public Use
  Company Number: PHHY2017DE196706

PATIENT
  Sex: Female

DRUGS (1)
  1. PANTOPRAZOL HEXAL [Suspect]
     Active Substance: PANTOPRAZOLE
     Indication: PRODUCT USED FOR UNKNOWN INDICATION
     Dosage: 40 MG, BID
     Route: 065

REACTIONS (3)
  - Jaundice [Unknown]
  - Aspartate aminotransferase increased [Unknown]
  - Yellow skin [Unknown]
